FAERS Safety Report 4918987-7 (Version None)
Quarter: 2006Q1

REPORT INFORMATION
  Report Type: 
  Country: None (occurrence: None)
  Receive Date: 20060222
  Receipt Date: 20060207
  Transmission Date: 20060701
  Serious: Yes (Other)
  Sender: FDA-Public Use
  Company Number: IT-JNJFOC-20060203584

PATIENT
  Age: 45 Year
  Sex: Female

DRUGS (2)
  1. INFLIXIMAB [Suspect]
     Indication: CROHN'S DISEASE
     Dosage: 4 INFUSIONS- MAINTENANCE
     Route: 042
  2. AZATHIOPRINE [Concomitant]
     Indication: CROHN'S DISEASE

REACTIONS (1)
  - LEUKAEMIA [None]
